FAERS Safety Report 4358768-9 (Version None)
Quarter: 2004Q2

REPORT INFORMATION
  Report Type: 
  Country: None (occurrence: None)
  Receive Date: 20040511
  Receipt Date: 20040503
  Transmission Date: 20050107
  Serious: Yes (Death)
  Sender: FDA-Public Use
  Company Number: 2004209603US

PATIENT
  Age: 22 Year
  Sex: Female
  Weight: 49.4 kg

DRUGS (3)
  1. XANAX [Suspect]
  2. COCAINE (COCAINE) [Suspect]
  3. HEROIN (DIAMORPHINE) [Suspect]

REACTIONS (1)
  - DRUG TOXICITY [None]
